FAERS Safety Report 11446098 (Version 1)
Quarter: 2015Q3

REPORT INFORMATION
  Report Type: Spontaneous
  Country: US (occurrence: US)
  Receive Date: 20150831
  Receipt Date: 20150831
  Transmission Date: 20151125
  Serious: No
  Sender: FDA-Public Use
  Company Number: US-ELI_LILLY_AND_COMPANY-US200809006020

PATIENT
  Age: 54 Year
  Sex: Female

DRUGS (6)
  1. BYETTA [Concomitant]
     Active Substance: EXENATIDE
     Dosage: 5 UG, UNK
     Route: 058
     Dates: start: 2005, end: 2005
  2. LANTUS [Concomitant]
     Active Substance: INSULIN GLARGINE
     Indication: TYPE 2 DIABETES MELLITUS
     Dosage: 10 U, DAILY (1/D)
     Route: 058
     Dates: start: 2007
  3. BYETTA [Concomitant]
     Active Substance: EXENATIDE
     Dosage: 10 UG, UNK
     Route: 058
     Dates: start: 2005, end: 2005
  4. BYETTA [Concomitant]
     Active Substance: EXENATIDE
     Indication: TYPE 2 DIABETES MELLITUS
     Dosage: 5 UG, UNK
     Route: 058
     Dates: start: 2005
  5. CYMBALTA [Suspect]
     Active Substance: DULOXETINE HYDROCHLORIDE
     Dosage: 10 MG, UNK
     Route: 048
     Dates: start: 200706, end: 20080919
  6. METFORMIN [Concomitant]
     Active Substance: METFORMIN HYDROCHLORIDE
     Indication: TYPE 2 DIABETES MELLITUS
     Dosage: 500 MG, DAILY (1/D)
     Route: 048

REACTIONS (6)
  - Dizziness [Recovered/Resolved]
  - Depression [Unknown]
  - Vomiting [Recovered/Resolved]
  - Nausea [Recovered/Resolved]
  - Blood glucose decreased [Recovered/Resolved]
  - Blood glucose increased [Recovering/Resolving]

NARRATIVE: CASE EVENT DATE: 2007
